FAERS Safety Report 15515797 (Version 1)
Quarter: 2018Q4

REPORT INFORMATION
  Report Type: Spontaneous
  Country: ES (occurrence: ES)
  Receive Date: 20181017
  Receipt Date: 20181017
  Transmission Date: 20190205
  Serious: Yes (Hospitalization, Other)
  Sender: FDA-Public Use
  Company Number: ES-AUROBINDO-AUR-APL-2018-050648

PATIENT
  Age: 61 Year
  Sex: Female

DRUGS (16)
  1. CAPECITABINE. [Suspect]
     Active Substance: CAPECITABINE
     Indication: METASTASES TO LIVER
     Dosage: UNK
     Route: 065
  2. OXALIPLATIN. [Suspect]
     Active Substance: OXALIPLATIN
     Dosage: UNK
     Route: 065
     Dates: start: 20141223, end: 20141223
  3. BEVACIZUMAB. [Suspect]
     Active Substance: BEVACIZUMAB
     Indication: LARGE INTESTINE PERFORATION
  4. FOLINIC ACID [Suspect]
     Active Substance: LEUCOVORIN
     Indication: LARGE INTESTINE PERFORATION
     Dosage: UNK
     Route: 065
     Dates: start: 20170711, end: 20180425
  5. FLUOROURACIL. [Suspect]
     Active Substance: FLUOROURACIL
     Indication: LARGE INTESTINE PERFORATION
  6. FOLINIC ACID [Suspect]
     Active Substance: LEUCOVORIN
     Indication: METASTASES TO LIVER
     Dosage: UNK
     Route: 065
     Dates: start: 20160713, end: 20160713
  7. FLUOROURACIL. [Suspect]
     Active Substance: FLUOROURACIL
     Indication: METASTASES TO LIVER
     Dosage: UNK
     Route: 065
     Dates: start: 20170711, end: 20180425
  8. IRINOTECAN CONCENTRATE FOR SOLUTION FOR INFUSION [Suspect]
     Active Substance: IRINOTECAN
     Indication: LARGE INTESTINE PERFORATION
     Dosage: UNK
     Route: 065
     Dates: start: 20170711, end: 20180425
  9. OXALIPLATIN. [Suspect]
     Active Substance: OXALIPLATIN
     Indication: METASTASES TO LIVER
     Dosage: UNK
     Route: 065
     Dates: start: 20160713, end: 20160713
  10. CAPECITABINE. [Suspect]
     Active Substance: CAPECITABINE
     Indication: LARGE INTESTINE PERFORATION
  11. IRINOTECAN CONCENTRATE FOR SOLUTION FOR INFUSION [Suspect]
     Active Substance: IRINOTECAN
     Indication: METASTASES TO LIVER
  12. ZALTRAP [Suspect]
     Active Substance: ZIV-AFLIBERCEPT
     Indication: LARGE INTESTINE PERFORATION
     Dosage: UNK
     Route: 065
     Dates: start: 20170711, end: 20180425
  13. ZALTRAP [Suspect]
     Active Substance: ZIV-AFLIBERCEPT
     Indication: METASTASES TO LIVER
  14. BEVACIZUMAB. [Suspect]
     Active Substance: BEVACIZUMAB
     Indication: METASTASES TO LIVER
     Dosage: UNK
     Route: 065
     Dates: start: 20160713, end: 20160713
  15. OXALIPLATIN. [Suspect]
     Active Substance: OXALIPLATIN
     Indication: LARGE INTESTINE PERFORATION
     Dosage: UNK
     Route: 065
     Dates: start: 20170125, end: 20170125
  16. OXALIPLATIN. [Suspect]
     Active Substance: OXALIPLATIN
     Dosage: UNK
     Route: 065

REACTIONS (6)
  - Asthenia [Unknown]
  - Neutropenia [Unknown]
  - Neurotoxicity [Not Recovered/Not Resolved]
  - Metastatic neoplasm [Unknown]
  - Metastases to liver [Unknown]
  - Hypersensitivity [Unknown]
